FAERS Safety Report 15223398 (Version 1)
Quarter: 2018Q3

REPORT INFORMATION
  Report Type: Spontaneous
  Country: GB (occurrence: GB)
  Receive Date: 20180731
  Receipt Date: 20180731
  Transmission Date: 20181010
  Serious: Yes (Other)
  Sender: FDA-Public Use
  Company Number: GB-MYLANLABS-2018M1055736

PATIENT
  Age: 47 Year
  Sex: Female

DRUGS (3)
  1. HYDROXYCARBAMIDE [Suspect]
     Active Substance: HYDROXYUREA
     Indication: PSORIASIS
     Dosage: UNK
  2. RAZOXANE [Suspect]
     Active Substance: DEXRAZOXANE
     Indication: PSORIASIS
     Dosage: (625?1125 MG/WEEK)
  3. METHOTREXATE. [Suspect]
     Active Substance: METHOTREXATE
     Indication: PSORIASIS
     Dosage: UNK, (BETWEEN MARCH, 1979, AND NOVEMBER, 1980),

REACTIONS (3)
  - Acute promyelocytic leukaemia [Unknown]
  - Neutropenia [Unknown]
  - Drug ineffective [Unknown]
